FAERS Safety Report 5994423-7 (Version None)
Quarter: 2008Q4

REPORT INFORMATION
  Report Type: 
  Country: None (occurrence: None)
  Receive Date: 20081209
  Receipt Date: 20081022
  Transmission Date: 20090506
  Serious: No
  Sender: FDA-Public Use
  Company Number: 002#2#2008-00709

PATIENT
  Age: 74 Year
  Sex: Male
  Weight: 97.0698 kg

DRUGS (6)
  1. NEUPRO [Suspect]
     Indication: PARKINSONISM
     Dosage: SEE IMAGE
     Route: 062
     Dates: start: 20070801, end: 20070901
  2. NEUPRO [Suspect]
     Indication: PARKINSONISM
     Dosage: SEE IMAGE
     Route: 062
     Dates: start: 20070901, end: 20071001
  3. NEUPRO [Suspect]
     Indication: PARKINSONISM
     Dosage: SEE IMAGE
     Route: 062
     Dates: start: 20071001, end: 20080401
  4. NEUPRO [Suspect]
     Indication: PARKINSONISM
     Dosage: SEE IMAGE
     Route: 062
     Dates: start: 20080501
  5. PARCOPA [Concomitant]
  6. COMTAN [Concomitant]

REACTIONS (1)
  - DRUG ADMINISTRATION ERROR [None]
